FAERS Safety Report 15776206 (Version 2)
Quarter: 2019Q1

REPORT INFORMATION
  Report Type: Spontaneous
  Country: US (occurrence: US)
  Receive Date: 20181231
  Receipt Date: 20190130
  Transmission Date: 20190417
  Serious: No
  Sender: FDA-Public Use
  Company Number: US-ASTRAZENECA-2018SF63437

PATIENT
  Sex: Male
  Weight: 106.6 kg

DRUGS (3)
  1. BYDUREON [Suspect]
     Active Substance: EXENATIDE
     Route: 058
  2. HUMALOGUE INSULIN [Concomitant]
     Indication: TYPE 2 DIABETES MELLITUS
     Dosage: 75/25 MIX, TWO TIMES A DAY, WHICH HE STARTED TAKING 2 YEARS AGO.
     Route: 058
  3. BYDUREON BCISE [Suspect]
     Active Substance: EXENATIDE
     Indication: TYPE 2 DIABETES MELLITUS
     Dosage: 2 MG ONCE A WEEK EVERY SUNDAY
     Route: 058

REACTIONS (8)
  - Weight decreased [Unknown]
  - Product administration error [Unknown]
  - Device issue [Unknown]
  - Visual impairment [Unknown]
  - Injection site haemorrhage [Unknown]
  - Injection site extravasation [Unknown]
  - Underdose [Unknown]
  - Circumstance or information capable of leading to medication error [Unknown]
